FAERS Safety Report 8775001 (Version 1)
Quarter: 2012Q4

REPORT INFORMATION
  Report Type: 
  Country: US (occurrence: US)
  Receive Date: 20120910
  Receipt Date: 20120910
  Transmission Date: 20130627
  Serious: Yes (Other)
  Sender: FDA-Public Use
  Company Number: US-009507513-1201USA00816

PATIENT

DRUGS (7)
  1. FOSAMAX [Suspect]
     Indication: OSTEOPENIA
     Route: 048
     Dates: start: 1998
  2. FOSAMAX [Suspect]
     Dosage: 35 mg, QW
     Route: 048
     Dates: start: 20070910, end: 20090903
  3. CALCIUM (UNSPECIFIED) [Concomitant]
     Indication: OSTEOPENIA
  4. VITAMIN D (UNSPECIFIED) [Concomitant]
     Indication: OSTEOPENIA
  5. SYNTHROID [Concomitant]
  6. VITAMIN E [Concomitant]
  7. ACTONEL [Concomitant]
     Indication: OSTEOPENIA
     Route: 048
     Dates: end: 20070910

REACTIONS (70)
  - Osteonecrosis of jaw [Unknown]
  - Oral disorder [Unknown]
  - Pyogenic granuloma [Unknown]
  - Jaw disorder [Unknown]
  - Eczema [Unknown]
  - Jaw disorder [Unknown]
  - Osteoarthritis [Unknown]
  - Bursitis [Unknown]
  - Nerve compression [Unknown]
  - Rheumatoid arthritis [Unknown]
  - Rash vesicular [Unknown]
  - Oral herpes [Unknown]
  - Actinic keratosis [Unknown]
  - Head injury [Unknown]
  - Ecchymosis [Unknown]
  - Contusion [Unknown]
  - Sinusitis [Unknown]
  - Emotional distress [Unknown]
  - Vitamin B12 deficiency [Unknown]
  - Atrophy [Unknown]
  - Cystocele [Unknown]
  - Drug intolerance [Unknown]
  - Depression [Unknown]
  - Rhinitis [Unknown]
  - Macrocytosis [Unknown]
  - Blood pressure inadequately controlled [Unknown]
  - Bronchitis [Unknown]
  - Restless legs syndrome [Unknown]
  - Urinary tract infection [Unknown]
  - Tachycardia [Unknown]
  - Paraesthesia [Unknown]
  - Anaemia of chronic disease [Not Recovered/Not Resolved]
  - Hypothyroidism [Unknown]
  - Glaucoma [Unknown]
  - Hypercholesterolaemia [Unknown]
  - Hyperlipidaemia [Unknown]
  - Spinal osteoarthritis [Unknown]
  - Lumbar spinal stenosis [Unknown]
  - Hypertension [Unknown]
  - Bone loss [Unknown]
  - Fall [Unknown]
  - Osteoporosis [Unknown]
  - Eczema [Unknown]
  - Influenza [Unknown]
  - Dental caries [Unknown]
  - Stomatitis [Unknown]
  - Bone disorder [Unknown]
  - Tooth fracture [Unknown]
  - Weight decreased [Unknown]
  - Arthritis [Unknown]
  - Granuloma [Unknown]
  - Gingival disorder [Unknown]
  - Oral disorder [Unknown]
  - Tooth fracture [Unknown]
  - Fatigue [Unknown]
  - Back disorder [Unknown]
  - Drug ineffective [Unknown]
  - Gingival ulceration [Unknown]
  - Arthralgia [Unknown]
  - Headache [Unknown]
  - Malaise [Unknown]
  - Vertigo [Unknown]
  - Nausea [Unknown]
  - Muscle spasms [Unknown]
  - Vertigo [Unknown]
  - Asthenia [Unknown]
  - Alopecia [Unknown]
  - Aphthous stomatitis [Unknown]
  - Drug hypersensitivity [Unknown]
  - Muscle spasms [Unknown]
